FAERS Safety Report 7735025-1 (Version None)
Quarter: 2011Q3

REPORT INFORMATION
  Report Type: 
  Country: None (occurrence: None)
  Receive Date: 20110817
  Receipt Date: 20100630
  Transmission Date: 20111222
  Serious: No
  Sender: FDA-Public Use
  Company Number: 20108126

PATIENT
  Sex: Female

DRUGS (1)
  1. LIORESAL [Suspect]
     Indication: MUSCLE SPASTICITY
     Dosage: MCG, DAILY, INTRATHECAL
     Route: 037

REACTIONS (2)
  - OVERDOSE [None]
  - SOMNOLENCE [None]
